FAERS Safety Report 23500431 (Version 1)
Quarter: 2024Q1

REPORT INFORMATION
  Report Type: Spontaneous
  Country: CA (occurrence: CA)
  Receive Date: 20240208
  Receipt Date: 20240208
  Transmission Date: 20240409
  Serious: Yes (Other)
  Sender: FDA-Public Use
  Company Number: CA-AstraZeneca-2024A024566

PATIENT
  Age: 48 Year
  Sex: Female

DRUGS (1)
  1. TRASTUZUMAB DERUXTECAN [Suspect]
     Active Substance: TRASTUZUMAB DERUXTECAN
     Indication: Product used for unknown indication
     Dosage: 355 MG, ONCE EVERY 3 WK
     Route: 042

REACTIONS (3)
  - General physical health deterioration [Unknown]
  - Jaundice [Unknown]
  - Anaemia [Unknown]
